FAERS Safety Report 24965940 (Version 5)
Quarter: 2025Q3

REPORT INFORMATION
  Report Type: Report from Study
  Country: CA (occurrence: CA)
  Receive Date: 20250213
  Receipt Date: 20250731
  Transmission Date: 20251020
  Serious: Yes (Other)
  Sender: TAKEDA
  Company Number: CA-TAKEDA-2025TUS014227

PATIENT
  Sex: Female

DRUGS (3)
  1. VEDOLIZUMAB [Suspect]
     Active Substance: VEDOLIZUMAB
     Indication: Colitis ulcerative
  2. VEDOLIZUMAB [Suspect]
     Active Substance: VEDOLIZUMAB
     Indication: Colitis ulcerative
     Dosage: 108 MILLIGRAM, Q2WEEKS
     Dates: start: 20250206
  3. Salofalk [Concomitant]

REACTIONS (11)
  - Haematochezia [Unknown]
  - Frequent bowel movements [Unknown]
  - Faeces soft [Not Recovered/Not Resolved]
  - Quality of life decreased [Not Recovered/Not Resolved]
  - Product dose omission issue [Unknown]
  - Malaise [Unknown]
  - Abdominal pain [Not Recovered/Not Resolved]
  - Dizziness [Not Recovered/Not Resolved]
  - Asthenia [Not Recovered/Not Resolved]
  - Haemorrhoids [Unknown]
  - Fatigue [Not Recovered/Not Resolved]
